FAERS Safety Report 8621742 (Version 4)
Quarter: 2013Q4

REPORT INFORMATION
  Report Type: Spontaneous
  Country: US (occurrence: US)
  Receive Date: 20120531
  Receipt Date: 20131031
  Transmission Date: 20140711
  Serious: Yes (Other)
  Sender: FDA-Public Use
  Company Number: US-009507513-2012SP027427

PATIENT
  Age: 39 Year
  Sex: Male

DRUGS (3)
  1. PEG-INTRON [Suspect]
     Indication: CHRONIC HEPATITIS
     Dosage: 150 MICROGRAMS, QW
     Route: 058
     Dates: start: 20120315
  2. REBETOL [Suspect]
     Dates: start: 20120315
  3. VICTRELIS [Suspect]
     Dates: start: 20120315

REACTIONS (1)
  - Convulsion [Unknown]
